FAERS Safety Report 23101180 (Version 3)
Quarter: 2023Q4

REPORT INFORMATION
  Report Type: Spontaneous
  Country: CZ (occurrence: CZ)
  Receive Date: 20231024
  Receipt Date: 20231108
  Transmission Date: 20240110
  Serious: Yes (Hospitalization, Other)
  Sender: FDA-Public Use
  Company Number: CZ-MLMSERVICE-20180703-1257840-1

PATIENT
  Age: 62 Year
  Sex: Male

DRUGS (5)
  1. PARICALCITOL [Suspect]
     Active Substance: PARICALCITOL
     Dosage: 1 UG, 1X/DAY
  2. CALCIUM [Suspect]
     Active Substance: CALCIUM
     Dosage: 1000 MG, 1X/DAY
  3. WARFARIN [Suspect]
     Active Substance: WARFARIN
     Indication: Deep vein thrombosis
     Dosage: UNK
     Dates: start: 1992
  4. ASPIRIN [Concomitant]
     Active Substance: ASPIRIN
     Dosage: UNK
  5. SODIUM BICARBONATE [Concomitant]
     Active Substance: SODIUM BICARBONATE
     Dosage: UNK

REACTIONS (1)
  - Calciphylaxis [Recovered/Resolved]
